FAERS Safety Report 22332269 (Version 6)
Quarter: 2024Q2

REPORT INFORMATION
  Report Type: Spontaneous
  Country: CA (occurrence: CA)
  Receive Date: 20230517
  Receipt Date: 20240401
  Transmission Date: 20240716
  Serious: Yes (Hospitalization)
  Sender: FDA-Public Use
  Company Number: CA-PFIZER INC-202201304578

PATIENT
  Age: 26 Year
  Sex: Male

DRUGS (8)
  1. ABRILADA [Suspect]
     Active Substance: ADALIMUMAB-AFZB
     Indication: Crohn^s disease
     Dosage: 160 MG, WEEK 0: 160 MG SC, WEEK 2: 80MG SC, THEN 40MG EVERY OTHER WEEK STARTING WEEK 4
     Route: 058
     Dates: start: 20221114, end: 2023
  2. ABRILADA [Suspect]
     Active Substance: ADALIMUMAB-AFZB
     Indication: Colitis ulcerative
     Dosage: 1 DF, WEEKLY, UNK STATUS
     Route: 058
  3. ABRILADA [Suspect]
     Active Substance: ADALIMUMAB-AFZB
     Dosage: 40 MG, WEEKLY
     Route: 058
     Dates: start: 2023, end: 2023
  4. ABRILADA [Suspect]
     Active Substance: ADALIMUMAB-AFZB
     Dosage: 80 MG, WEEKLY
     Route: 058
     Dates: start: 2023
  5. ENTOCORT [Concomitant]
     Active Substance: BUDESONIDE
     Dosage: UNK
  6. FOLIC ACID [Concomitant]
     Active Substance: FOLIC ACID
     Dosage: UNK
  7. METHOTREXATE [Concomitant]
     Active Substance: METHOTREXATE
     Dosage: UNK
  8. CHOLECALCIFEROL [Concomitant]
     Active Substance: CHOLECALCIFEROL
     Dosage: UNK

REACTIONS (12)
  - Abscess [Not Recovered/Not Resolved]
  - Drug ineffective [Recovering/Resolving]
  - Drug level decreased [Unknown]
  - Abdominal pain upper [Unknown]
  - Pharyngitis [Not Recovered/Not Resolved]
  - Oropharyngeal pain [Not Recovered/Not Resolved]
  - Odynophagia [Not Recovered/Not Resolved]
  - Feeding disorder [Not Recovered/Not Resolved]
  - Peripheral coldness [Unknown]
  - Rash [Not Recovered/Not Resolved]
  - Off label use [Unknown]
  - Off label use [Unknown]

NARRATIVE: CASE EVENT DATE: 20220101
